FAERS Safety Report 10096549 (Version 2)
Quarter: 2014Q2

REPORT INFORMATION
  Report Type: Spontaneous
  Country: US (occurrence: US)
  Receive Date: 20140422
  Receipt Date: 20140422
  Transmission Date: 20141212
  Serious: No
  Sender: FDA-Public Use
  Company Number: US-GILEAD-2013-0068759

PATIENT
  Sex: Male

DRUGS (1)
  1. LETAIRIS [Suspect]
     Indication: PULMONARY ARTERIAL HYPERTENSION
     Dosage: 10 MG, UNK
     Dates: start: 20121030

REACTIONS (5)
  - Back pain [Unknown]
  - Diarrhoea [Unknown]
  - Dysphemia [Unknown]
  - Amnesia [Unknown]
  - Rhinorrhoea [Unknown]
